FAERS Safety Report 17702393 (Version 1)
Quarter: 2020Q2

REPORT INFORMATION
  Report Type: Spontaneous
  Country: US (occurrence: US)
  Receive Date: 20200424
  Receipt Date: 20200424
  Transmission Date: 20200714
  Serious: Yes (Life-Threatening, Hospitalization)
  Sender: FDA-Public Use
  Company Number: US-ADAREPHARM-2020-US-000044

PATIENT
  Age: 37 Year
  Sex: Female

DRUGS (1)
  1. PROPRANOLOL [Suspect]
     Active Substance: PROPRANOLOL HYDROCHLORIDE
     Indication: TACHYCARDIA
     Dosage: 60 MG OF PROPRANOLOL THREE TIMES DAILY

REACTIONS (1)
  - Cardiogenic shock [Recovered/Resolved]
